FAERS Safety Report 4896300-1 (Version None)
Quarter: 2006Q1

REPORT INFORMATION
  Report Type: 
  Country: None (occurrence: None)
  Receive Date: 20060126
  Receipt Date: 20060111
  Transmission Date: 20060701
  Serious: Yes (Hospitalization)
  Sender: FDA-Public Use
  Company Number: A044-002-005911

PATIENT
  Age: 83 Year
  Sex: Female

DRUGS (7)
  1. ARICEPT [Suspect]
     Indication: DEMENTIA ALZHEIMER'S TYPE
     Dosage: 5 MG, 1 IN 1 D, ORAL
     Route: 048
  2. PERINDOPRIL (PERINDOPRIL) [Concomitant]
  3. TRIBENOSID (TRIBENOSIDE) [Concomitant]
  4. ASPIRIN [Concomitant]
  5. DIGOXIN [Concomitant]
  6. AMILORIDI (AMILORIDE) [Concomitant]
  7. ALLOPURINOL [Concomitant]

REACTIONS (6)
  - CAROTID ARTERY ATHEROMA [None]
  - CEREBRAL ATROPHY [None]
  - FALL [None]
  - GENERAL PHYSICAL HEALTH DETERIORATION [None]
  - OEDEMA PERIPHERAL [None]
  - VERTIGO [None]
